FAERS Safety Report 8774309 (Version 2)
Quarter: 2013Q4

REPORT INFORMATION
  Report Type: Spontaneous
  Country: US (occurrence: US)
  Receive Date: 20120907
  Receipt Date: 20131101
  Transmission Date: 20140711
  Serious: No
  Sender: FDA-Public Use
  Company Number: US-009507513-1208USA010025

PATIENT
  Sex: 0

DRUGS (1)
  1. COSOPT [Suspect]
     Route: 047

REACTIONS (3)
  - Burning sensation [Unknown]
  - Pain [Unknown]
  - Incorrect product storage [Unknown]
